FAERS Safety Report 16944504 (Version 1)
Quarter: 2019Q4

REPORT INFORMATION
  Report Type: Report from Study
  Country: GB (occurrence: GB)
  Receive Date: 20191022
  Receipt Date: 20191022
  Transmission Date: 20200122
  Serious: Yes (Hospitalization)
  Sender: FDA-Public Use
  Company Number: PHHO2007GB022765

PATIENT
  Age: 64 Year
  Sex: Male
  Weight: 65.9 kg

DRUGS (4)
  1. FOLINIC ACID [Suspect]
     Active Substance: LEUCOVORIN
     Indication: COLORECTAL CANCER
     Route: 042
  2. OXALIPLATIN. [Suspect]
     Active Substance: OXALIPLATIN
     Indication: COLORECTAL CANCER
     Route: 042
     Dates: start: 20070807
  3. 5 FLUOROURACIL [Suspect]
     Active Substance: FLUOROURACIL
     Indication: COLORECTAL CANCER
     Dosage: 300 MG/M2,
     Route: 042
     Dates: start: 20070807
  4. PAZOPANIB [Suspect]
     Active Substance: PAZOPANIB
     Indication: COLORECTAL CANCER
     Dosage: 400 MG,
     Route: 048
     Dates: end: 20070820

REACTIONS (5)
  - Cold sweat [Unknown]
  - Febrile neutropenia [Recovered/Resolved]
  - Malaise [Unknown]
  - Pyrexia [Unknown]
  - Fatigue [Unknown]

NARRATIVE: CASE EVENT DATE: 20070822
